FAERS Safety Report 5717963-4 (Version None)
Quarter: 2008Q2

REPORT INFORMATION
  Report Type: 
  Country: None (occurrence: None)
  Receive Date: 20080425
  Receipt Date: 20080423
  Transmission Date: 20081010
  Serious: Yes (Other)
  Sender: FDA-Public Use
  Company Number: A0721871A

PATIENT
  Age: 31 Year
  Sex: Female

DRUGS (4)
  1. LAMICTAL [Suspect]
     Indication: DRUG USE FOR UNKNOWN INDICATION
     Dosage: 200MG UNKNOWN
     Route: 048
     Dates: start: 20080101, end: 20080405
  2. TOPAMAX [Concomitant]
  3. WELLBUTRIN XL [Concomitant]
     Dosage: 300MG UNKNOWN
     Route: 048
  4. ADDERALL 10 [Concomitant]
     Dosage: 30MG THREE TIMES PER DAY
     Route: 048

REACTIONS (7)
  - DYSPHONIA [None]
  - ERYTHEMA [None]
  - HYPERSENSITIVITY [None]
  - NAUSEA [None]
  - RASH [None]
  - SKIN EXFOLIATION [None]
  - STEVENS-JOHNSON SYNDROME [None]
